FAERS Safety Report 7415172-4 (Version None)
Quarter: 2011Q2

REPORT INFORMATION
  Report Type: 
  Country: None (occurrence: None)
  Receive Date: 20110414
  Receipt Date: 20110406
  Transmission Date: 20111010
  Serious: Yes (Other)
  Sender: FDA-Public Use
  Company Number: US-PURDUE-USA-2010-0057124

PATIENT
  Sex: Female

DRUGS (2)
  1. OXYCONTIN [Suspect]
     Indication: NEOPLASM MALIGNANT
     Dosage: 80 MG, 7 TABLETS DAILY
     Route: 048
     Dates: start: 20100801
  2. OXYCONTIN [Suspect]
     Indication: PAIN

REACTIONS (6)
  - GASTRIC DISORDER [None]
  - VOMITING [None]
  - MIGRAINE [None]
  - DRUG INEFFECTIVE [None]
  - INFECTION [None]
  - ULCER HAEMORRHAGE [None]
